FAERS Safety Report 6661122-8 (Version None)
Quarter: 2010Q1

REPORT INFORMATION
  Report Type: 
  Country: None (occurrence: None)
  Receive Date: 20100331
  Receipt Date: 20100325
  Transmission Date: 20100710
  Serious: Yes (Other)
  Sender: FDA-Public Use
  Company Number: BR-BAYER-201012490LA

PATIENT
  Age: 25 Year
  Sex: Female

DRUGS (1)
  1. MIRENA [Suspect]
     Indication: CONTRACEPTION
     Dosage: FREQUENCY: CONTINUOUS
     Route: 015
     Dates: start: 20080904, end: 20100324

REACTIONS (18)
  - ABDOMINAL DISTENSION [None]
  - ABDOMINAL PAIN [None]
  - ACNE [None]
  - ALOPECIA [None]
  - AMENORRHOEA [None]
  - ASTHENIA [None]
  - BACK PAIN [None]
  - BLOOD PRESSURE DECREASED [None]
  - DEPRESSED MOOD [None]
  - DYSPAREUNIA [None]
  - EMOTIONAL DISTRESS [None]
  - IMMUNE SYSTEM DISORDER [None]
  - MEDICAL DEVICE COMPLICATION [None]
  - NERVOUSNESS [None]
  - PELVIC PAIN [None]
  - SYNCOPE [None]
  - UTERINE PAIN [None]
  - VAGINAL HAEMORRHAGE [None]
